FAERS Safety Report 10580836 (Version 1)
Quarter: 2014Q4

REPORT INFORMATION
  Report Type: Spontaneous
  Country: US (occurrence: None)
  Receive Date: 20141110
  Receipt Date: 20141110
  Transmission Date: 20150529
  Serious: Yes (Death, Hospitalization)
  Sender: FDA-Public Use
  Company Number: FK201404749

PATIENT
  Age: 80 Year
  Sex: Male

DRUGS (1)
  1. AMIODARONE HCL [Suspect]
     Active Substance: AMIODARONE HYDROCHLORIDE
     Indication: ATRIAL FIBRILLATION
     Dosage: 0.5 MG/MIN
     Route: 041

REACTIONS (6)
  - Hypoxia [None]
  - Syncope [None]
  - Pulmonary toxicity [None]
  - Dyspnoea [None]
  - Cough [None]
  - Leukocytosis [None]
